FAERS Safety Report 14746845 (Version 1)
Quarter: 2018Q2

REPORT INFORMATION
  Report Type: Spontaneous
  Country: CA (occurrence: CA)
  Receive Date: 20180411
  Receipt Date: 20180411
  Transmission Date: 20180711
  Serious: Yes (Other)
  Sender: FDA-Public Use
  Company Number: CA-JNJFOC-20180404805

PATIENT
  Age: 17 Year
  Sex: Female

DRUGS (6)
  1. PEG 3350 [Concomitant]
     Active Substance: POLYETHYLENE GLYCOL 3350
     Route: 065
  2. LANSOPRAZOLE. [Concomitant]
     Active Substance: LANSOPRAZOLE
     Route: 065
  3. BIOTIN [Concomitant]
     Active Substance: BIOTIN
     Route: 065
  4. CURCUMIN [Concomitant]
     Active Substance: CURCUMIN
     Route: 065
  5. INFLIXIMAB, RECOMBINANT [Suspect]
     Active Substance: INFLIXIMAB
     Indication: CROHN^S DISEASE
     Dosage: 5-6 MG/KG (ALSO REPORTED) AT WEEKS 0, 2 AND 6 FOLLOWED BY MAINTENANCE INFUSIONS EVERY 8 WEEKS
     Route: 042
  6. INFLIXIMAB, RECOMBINANT [Suspect]
     Active Substance: INFLIXIMAB
     Indication: CROHN^S DISEASE
     Dosage: SIXTH INFUSION
     Route: 042

REACTIONS (1)
  - Autoimmune hepatitis [Recovered/Resolved]
